FAERS Safety Report 6998760-9 (Version None)
Quarter: 2010Q3

REPORT INFORMATION
  Report Type: 
  Country: None (occurrence: None)
  Receive Date: 20100920
  Receipt Date: 20090805
  Transmission Date: 20110219
  Serious: No
  Sender: FDA-Public Use
  Company Number: US-ASTRAZENECA-2009SE07061

PATIENT
  Age: 93 Year
  Sex: Male

DRUGS (2)
  1. SEROQUEL [Suspect]
     Dosage: 12.5 MG IN THE MORNING AND 25 MG AT NIGHT
     Route: 048
  2. SEROQUEL [Suspect]
     Dosage: 12.5 MG IN THE MORNING AND 12.5 MG AT NIGHT
     Route: 048

REACTIONS (2)
  - AGITATION [None]
  - SCREAMING [None]
